FAERS Safety Report 9442008 (Version 1)
Quarter: 2013Q3

REPORT INFORMATION
  Report Type: Spontaneous
  Country: US (occurrence: US)
  Receive Date: 20130806
  Receipt Date: 20130806
  Transmission Date: 20140515
  Serious: Yes (Hospitalization, Other)
  Sender: FDA-Public Use
  Company Number: US-ELI_LILLY_AND_COMPANY-US201307008873

PATIENT
  Age: 52 Year
  Sex: Male

DRUGS (12)
  1. HUMALOG LISPRO [Suspect]
     Indication: TYPE 2 DIABETES MELLITUS
     Dosage: UNK UNK, PRN
     Dates: start: 201101
  2. COUMADIN [Suspect]
     Indication: TYPE 2 DIABETES MELLITUS
     Dosage: UNK, UNKNOWN
  3. LANTUS [Concomitant]
     Dosage: 46 U, BID
  4. ASPIRIN [Concomitant]
     Dosage: 81 MG, UNKNOWN
  5. GABAPENTIN [Concomitant]
     Dosage: UNK, UNKNOWN
  6. METOPROLOL [Concomitant]
     Dosage: UNK, UNKNOWN
  7. AMBIEN [Concomitant]
     Dosage: UNK, UNKNOWN
  8. FUROSEMIDE [Concomitant]
     Dosage: UNK, UNKNOWN
  9. SPIRONOLACTONE [Concomitant]
     Dosage: UNK, UNKNOWN
  10. CRESTOR [Concomitant]
     Dosage: UNK, UNKNOWN
  11. METFORMIN [Concomitant]
     Dosage: UNK, UNKNOWN
  12. LISINOPRIL [Concomitant]
     Dosage: UNK, UNKNOWN

REACTIONS (10)
  - Myocardial infarction [Unknown]
  - Cerebrovascular accident [Recovered/Resolved with Sequelae]
  - Blood glucose increased [Unknown]
  - Weight increased [Unknown]
  - Visual impairment [Unknown]
  - Rash [Unknown]
  - Diabetic neuropathy [Not Recovered/Not Resolved]
  - Pollakiuria [Not Recovered/Not Resolved]
  - Sleep disorder [Not Recovered/Not Resolved]
  - Drug ineffective [Unknown]
